FAERS Safety Report 5870228-2 (Version None)
Quarter: 2008Q3

REPORT INFORMATION
  Report Type: 
  Country: None (occurrence: None)
  Receive Date: 20080904
  Receipt Date: 20080827
  Transmission Date: 20090109
  Serious: Yes (Other)
  Sender: FDA-Public Use
  Company Number: JP-BRISTOL-MYERS SQUIBB COMPANY-14322648

PATIENT
  Age: 70 Year
  Sex: Female

DRUGS (10)
  1. ABILIFY [Suspect]
     Indication: SCHIZOPHRENIA
     Dosage: 14AUG08-19AUG08: 6MG BID 20AUG08-20AUG08: 6MG TID
     Route: 048
     Dates: start: 20080814, end: 20080820
  2. AKINETON [Suspect]
     Dosage: 1 MG TABLET 6 MG PER DAY
     Route: 048
     Dates: end: 20080813
  3. ARTANE [Suspect]
     Route: 048
     Dates: end: 20080813
  4. RISPERDAL [Concomitant]
     Dates: end: 20080813
  5. ZYPREXA [Concomitant]
     Dates: end: 20080813
  6. SEROQUEL [Concomitant]
     Dates: end: 20080813
  7. FLUNITRAZEPAM [Concomitant]
     Dosage: FORMULATION: TABLET
     Dates: start: 20080814
  8. POLYCARBOPHIL CALCIUM [Concomitant]
     Dosage: TAB
     Dates: start: 20080814
  9. SENNOSIDE [Concomitant]
     Dosage: FORMULATION: TABLET
     Dates: start: 20080814
  10. MAGNESIUM OXIDE [Concomitant]
     Dates: start: 20080814

REACTIONS (2)
  - ILEUS PARALYTIC [None]
  - NEUROGENIC BLADDER [None]
